FAERS Safety Report 10243318 (Version 1)
Quarter: 2014Q2

REPORT INFORMATION
  Report Type: Report from Study
  Country: US (occurrence: US)
  Receive Date: 20140618
  Receipt Date: 20140618
  Transmission Date: 20141212
  Serious: Yes (Other)
  Sender: FDA-Public Use
  Company Number: PHEH2014US012053

PATIENT
  Sex: Female
  Weight: 111.57 kg

DRUGS (20)
  1. TASIGNA [Suspect]
     Indication: CHRONIC MYELOID LEUKAEMIA
     Dosage: 300 MG, BID
     Route: 048
     Dates: start: 201402
  2. METHYLPREDNISOLONE ACETATE [Concomitant]
  3. ATORVASTATIN [Concomitant]
  4. MELOXICAM [Concomitant]
  5. CYCLOBENZAPRINE HCL [Concomitant]
  6. SYNTHROID [Concomitant]
     Dosage: 150 UG, UNK
  7. SYNTHROID [Concomitant]
     Dosage: 125 UG, UNK
  8. ESCITALOPRAM OXALATE [Concomitant]
  9. LOSARTAN POTASSIUM [Concomitant]
  10. CARVEDILOL [Concomitant]
  11. CLONAZEPAM [Concomitant]
  12. LISINOPRIL [Concomitant]
  13. ALPRAZOLAM [Concomitant]
  14. DICYCLOMINE HCL [Concomitant]
  15. ONDASETRON//ONDANSETRON HYDROCHLORIDE [Concomitant]
  16. RESTASIS [Concomitant]
  17. OMEPRAZOLE [Concomitant]
  18. FUROSEMIDE [Concomitant]
  19. AMLODIPINE BESYLATE [Concomitant]
  20. GLEEVEC [Concomitant]

REACTIONS (5)
  - Pulmonary mass [Unknown]
  - Dyspnoea [Unknown]
  - Malaise [Recovered/Resolved]
  - Nausea [Recovered/Resolved]
  - Rash [Recovered/Resolved]
